FAERS Safety Report 24769693 (Version 1)
Quarter: 2024Q4

REPORT INFORMATION
  Report Type: Spontaneous
  Country: FI (occurrence: FI)
  Receive Date: 20241224
  Receipt Date: 20241224
  Transmission Date: 20250115
  Serious: Yes (Disabling)
  Sender: TAKEDA
  Company Number: None

PATIENT
  Age: 12 Year
  Sex: Male

DRUGS (1)
  1. LISDEXAMFETAMINE DIMESYLATE [Suspect]
     Active Substance: LISDEXAMFETAMINE DIMESYLATE
     Indication: Attention deficit hyperactivity disorder
     Dosage: 40 MILLIGRAM, QD
     Dates: start: 2021

REACTIONS (6)
  - Dermatitis allergic [Recovering/Resolving]
  - Restlessness [Recovering/Resolving]
  - Aggression [Recovering/Resolving]
  - Skin ulcer [Recovering/Resolving]
  - Scar [Recovering/Resolving]
  - Skin lesion [Recovering/Resolving]

NARRATIVE: CASE EVENT DATE: 20210501
